FAERS Safety Report 4825235-5 (Version None)
Quarter: 2005Q4

REPORT INFORMATION
  Report Type: 
  Country: None (occurrence: None)
  Receive Date: 20051109
  Receipt Date: 20051109
  Transmission Date: 20060501
  Serious: Yes (Life-Threatening)
  Sender: FDA-Public Use
  Company Number: None

PATIENT
  Age: 54 Year
  Sex: Male
  Weight: 109 kg

DRUGS (2)
  1. IBUPROFEN [Suspect]
     Indication: INFLAMMATION
     Dosage: 400 MG PO TID
     Route: 048
  2. IBUPROFEN [Suspect]
     Indication: PAIN
     Dosage: 400 MG PO TID
     Route: 048

REACTIONS (3)
  - DIZZINESS [None]
  - FAECES DISCOLOURED [None]
  - FATIGUE [None]
